FAERS Safety Report 5760271-6 (Version None)
Quarter: 2008Q2

REPORT INFORMATION
  Report Type: 
  Country: None (occurrence: None)
  Receive Date: 20080602
  Receipt Date: 20080521
  Transmission Date: 20081010
  Serious: Yes (Other)
  Sender: FDA-Public Use
  Company Number: GXKR2006GB04425

PATIENT
  Sex: Female
  Weight: 96.6 kg

DRUGS (7)
  1. OMEPRAZOLE [Suspect]
     Indication: BARRETT'S OESOPHAGUS
     Dosage: ORAL
     Route: 048
  2. OMEPRAZOLE [Suspect]
     Indication: REFLUX OESOPHAGITIS
     Dosage: ORAL
     Route: 048
  3. ESOMEPRAZOLE MAGNESIUM [Suspect]
     Indication: BARRETT'S OESOPHAGUS
     Dosage: ORAL
     Route: 048
     Dates: start: 20030101, end: 20030101
  4. ESOMEPRAZOLE MAGNESIUM [Suspect]
     Indication: REFLUX OESOPHAGITIS
     Dosage: ORAL
     Route: 048
     Dates: start: 20030101, end: 20030101
  5. RABEPRAZOLE SODIUM [Concomitant]
  6. CODEINE PHOSPHATE AND ACETAMINOPHEN [Concomitant]
  7. PANTOPRAZOLE SODIUM [Concomitant]

REACTIONS (6)
  - DYSPNOEA [None]
  - LEFT VENTRICULAR FAILURE [None]
  - OEDEMA [None]
  - OEDEMA PERIPHERAL [None]
  - SENSATION OF HEAVINESS [None]
  - WEIGHT INCREASED [None]
